FAERS Safety Report 12697436 (Version 1)
Quarter: 2016Q3

REPORT INFORMATION
  Report Type: Spontaneous
  Country: US (occurrence: None)
  Receive Date: 20160829
  Receipt Date: 20160829
  Transmission Date: 20161109
  Serious: Yes (Other)
  Sender: FDA-Public Use
  Company Number: None

PATIENT
  Age: 37 Year
  Sex: Male
  Weight: 70.31 kg

DRUGS (1)
  1. LIDOCAINE. [Suspect]
     Active Substance: LIDOCAINE
     Indication: PAIN
     Dosage: GIVEN INTO/UNDER TH SKIN
     Route: 058
     Dates: start: 20160526, end: 20160531

REACTIONS (1)
  - Injection site hypoaesthesia [None]

NARRATIVE: CASE EVENT DATE: 20160528
